FAERS Safety Report 7829821-X (Version None)
Quarter: 2011Q4

REPORT INFORMATION
  Report Type: 
  Country: None (occurrence: None)
  Receive Date: 20111019
  Receipt Date: 20111011
  Transmission Date: 20120403
  Serious: Yes (Hospitalization, Other)
  Sender: FDA-Public Use
  Company Number: KAD201109-00011

PATIENT
  Age: 59 Year
  Sex: Female
  Weight: 131.0895 kg

DRUGS (15)
  1. RIBAVIRIN [Suspect]
     Indication: HEPATITIS C
     Dosage: 1200 MG DAILY, ORAL, 1 TABLET TWICE DAILY
     Route: 048
     Dates: start: 20110701, end: 20110902
  2. RIBAVIRIN [Suspect]
     Indication: HEPATITIS C
     Dosage: 1200 MG DAILY, ORAL, 1 TABLET TWICE DAILY
     Route: 048
     Dates: start: 20110702, end: 20110901
  3. LISINOPRIL [Concomitant]
  4. NORVASC [Concomitant]
  5. LABETALOL HCL [Concomitant]
  6. PERCOCET (INJECTION) [Concomitant]
  7. HYDROCHLOROTHIAZIDE [Concomitant]
  8. CYCLOBENZAPRINE [Concomitant]
  9. AGGRENOX [Concomitant]
  10. LIPITOR [Concomitant]
  11. PEGINTERFERON ALFA-2A [Suspect]
     Indication: HEPATITIS C
     Dosage: 180 MCG WEEKLY, SUBCUTANEOUS
     Route: 058
     Dates: start: 20110701, end: 20110902
  12. PEGINTERFERON ALFA-2A [Suspect]
     Indication: HEPATITIS C
     Dosage: 180 MCG WEEKLY, SUBCUTANEOUS
     Route: 058
     Dates: start: 20110722, end: 20110901
  13. INCIVEK [Suspect]
     Indication: HEPATITIS C
     Dosage: 750 MG TOTAL DAILY DOSE, ORAL, 2 TABLETS 3 TIMES A DAY
     Route: 048
     Dates: start: 20110722, end: 20110901
  14. INCIVEK [Suspect]
     Indication: HEPATITIS C
     Dosage: 750 MG TOTAL DAILY DOSE, ORAL, 2 TABLETS 3 TIMES A DAY
     Route: 048
     Dates: start: 20110701, end: 20110902
  15. AMLODIPINE [Concomitant]

REACTIONS (9)
  - DRY MOUTH [None]
  - ACTIVITIES OF DAILY LIVING IMPAIRED [None]
  - CARDIAC DISORDER [None]
  - FATIGUE [None]
  - INSOMNIA [None]
  - APTYALISM [None]
  - SYNCOPE [None]
  - DIZZINESS [None]
  - ASTHENIA [None]
